FAERS Safety Report 14319323 (Version 1)
Quarter: 2017Q4

REPORT INFORMATION
  Report Type: Spontaneous
  Country: US (occurrence: US)
  Receive Date: 20171221
  Receipt Date: 20171221
  Transmission Date: 20180321
  Serious: No
  Sender: FDA-Public Use
  Company Number: None

PATIENT
  Sex: Female
  Weight: 92.53 kg

DRUGS (4)
  1. OTEZLA [Suspect]
     Active Substance: APREMILAST
     Indication: OVARIAN FAILURE POSTOPERATIVE
     Route: 048
     Dates: start: 201602
  2. OTEZLA [Suspect]
     Active Substance: APREMILAST
     Indication: PSORIASIS
     Route: 048
     Dates: start: 201602
  3. OTEZLA [Suspect]
     Active Substance: APREMILAST
     Indication: PSORIATIC ARTHROPATHY
     Route: 048
     Dates: start: 201602
  4. OTEZLA [Suspect]
     Active Substance: APREMILAST
     Indication: MENOPAUSE
     Route: 048
     Dates: start: 201602

REACTIONS (1)
  - Diarrhoea [None]
